FAERS Safety Report 8540930-2 (Version None)
Quarter: 2012Q3

REPORT INFORMATION
  Report Type: 
  Country: None (occurrence: None)
  Receive Date: 20120726
  Receipt Date: 20110812
  Transmission Date: 20120928
  Serious: No
  Sender: FDA-Public Use
  Company Number: US-ASTRAZENECA-2011SE48951

PATIENT
  Sex: Female

DRUGS (2)
  1. SEROQUEL [Suspect]
     Indication: BIPOLAR I DISORDER
     Route: 048
     Dates: start: 20010101
  2. SEROQUEL [Suspect]
     Route: 048

REACTIONS (5)
  - CONSTIPATION [None]
  - WRONG TECHNIQUE IN DRUG USAGE PROCESS [None]
  - WEIGHT INCREASED [None]
  - DIZZINESS [None]
  - DRY MOUTH [None]
